FAERS Safety Report 10511359 (Version 2)
Quarter: 2014Q4

REPORT INFORMATION
  Report Type: Spontaneous
  Country: US (occurrence: None)
  Receive Date: 20141002
  Receipt Date: 20141020
  Transmission Date: 20150528
  Serious: Yes (Other)
  Sender: FDA-Public Use
  Company Number: US-MDCO-14-00083

PATIENT
  Age: 47 Year
  Sex: Male

DRUGS (6)
  1. CEFAZOLIN (CEFAZOLIN) (CEFAZOLIN) [Concomitant]
  2. FENTANYL (FENTANYL) [Concomitant]
     Active Substance: FENTANYL
  3. MORPHIE (MORPHINE) [Concomitant]
  4. FAMOTIDINE (FAMOTIDINE) [Concomitant]
     Active Substance: FAMOTIDINE
  5. CLEVIPREX [Suspect]
     Active Substance: CLEVIDIPINE
     Indication: MALIGNANT HYPERTENSION
     Dosage: 1 MG/HR (INITIAL) AND 16 MG/HR (MAX), INFUSION?
     Dates: start: 20131105, end: 20131105
  6. ONDANSETRON. [Concomitant]
     Active Substance: ONDANSETRON

REACTIONS (3)
  - Atrial fibrillation [None]
  - Electrocardiogram QT prolonged [None]
  - Sinus tachycardia [None]

NARRATIVE: CASE EVENT DATE: 20131105
